FAERS Safety Report 16692734 (Version 1)
Quarter: 2019Q3

REPORT INFORMATION
  Report Type: Spontaneous
  Country: DE (occurrence: DE)
  Receive Date: 20190812
  Receipt Date: 20190812
  Transmission Date: 20191004
  Serious: Yes (Other)
  Sender: FDA-Public Use
  Company Number: DE-BAYER-2019-148775

PATIENT
  Sex: Male
  Weight: 65 kg

DRUGS (1)
  1. AVALOX [Suspect]
     Active Substance: MOXIFLOXACIN HYDROCHLORIDE
     Dosage: 1 DF, BID
     Route: 048
     Dates: start: 20180307, end: 20180308

REACTIONS (8)
  - Skin necrosis [None]
  - Abnormal loss of weight [None]
  - Chronic fatigue syndrome [None]
  - Depression [None]
  - Myopathy [None]
  - Tendonitis [None]
  - Visual impairment [None]
  - Suicidal ideation [None]

NARRATIVE: CASE EVENT DATE: 20180308
